FAERS Safety Report 22345513 (Version 2)
Quarter: 2023Q2

REPORT INFORMATION
  Report Type: Spontaneous
  Country: CN (occurrence: None)
  Receive Date: 20230519
  Receipt Date: 20230607
  Transmission Date: 20230722
  Serious: Yes (Other)
  Sender: FDA-Public Use
  Company Number: 2023A113348

PATIENT
  Age: 66 Year
  Sex: Female
  Weight: 46 kg

DRUGS (3)
  1. IMFINZI [Suspect]
     Active Substance: DURVALUMAB
     Indication: Small cell lung cancer
     Dosage: 1000MG/PERIOD, FIRST-LINE THERAPY1000.0MG EVERY CYCLE
     Route: 042
     Dates: start: 20230221, end: 20230221
  2. ETOPOSIDE [Concomitant]
     Active Substance: ETOPOSIDE
     Dosage: FIRST-LINE THERAPY UNKNOWN
  3. LENVATINIB [Concomitant]
     Active Substance: LENVATINIB
     Dosage: UNKNOWN
     Dates: start: 2023

REACTIONS (1)
  - Lung abscess [Not Recovered/Not Resolved]
